FAERS Safety Report 4421352-2 (Version None)
Quarter: 2004Q3

REPORT INFORMATION
  Report Type: 
  Country: None (occurrence: None)
  Receive Date: 20040706
  Receipt Date: 20040429
  Transmission Date: 20050211
  Serious: Yes (Life-Threatening)
  Sender: FDA-Public Use
  Company Number: 236600

PATIENT
  Age: 76 Year
  Sex: Female
  Weight: 76.2 kg

DRUGS (4)
  1. NOVOLOG [Suspect]
     Indication: DIABETES MELLITUS INSULIN-DEPENDENT
     Dosage: 6 - 10 UNITS, TID, SUBCUTANEOUS
     Route: 058
     Dates: start: 20031101
  2. LANTUS [Concomitant]
  3. NOVOPEN(R) JUNIOR (INSULIN DELIVERY DEVICE) [Concomitant]
  4. NOVOFINE(R) 30 (NEEDLE) [Concomitant]

REACTIONS (1)
  - HYPOGLYCAEMIC COMA [None]
